FAERS Safety Report 9813435 (Version 2)
Quarter: 2014Q1

REPORT INFORMATION
  Report Type: Report from Study
  Country: US (occurrence: US)
  Receive Date: 20140113
  Receipt Date: 20140113
  Transmission Date: 20141002
  Serious: Yes (Hospitalization)
  Sender: FDA-Public Use
  Company Number: US-ACTELION-A-US2013-89251

PATIENT
  Age: 60 Year
  Sex: Female
  Weight: 46.71 kg

DRUGS (7)
  1. VENTAVIS [Suspect]
     Indication: PULMONARY ARTERIAL HYPERTENSION
     Dosage: 0.25 ML, 6-9 TIMES QD
     Route: 055
     Dates: start: 20120815
  2. LETAIRIS [Concomitant]
     Dosage: 10 MG, QD
     Route: 048
     Dates: start: 20130311
  3. SILDENAFIL [Concomitant]
     Dosage: 20 MG, TID
     Route: 048
     Dates: start: 20121012
  4. COUMADIN [Concomitant]
     Dosage: 5 MG, QD
     Route: 048
  5. TYVASO [Concomitant]
  6. CYMBALTA [Concomitant]
     Dosage: 30 MG, QD
     Route: 048
  7. SOTALOL [Concomitant]
     Dosage: 140 MG, QD
     Route: 048

REACTIONS (7)
  - Fatigue [Unknown]
  - Oedema [Unknown]
  - Weight increased [Recovering/Resolving]
  - Condition aggravated [Unknown]
  - Dyspnoea exertional [Unknown]
  - Iron deficiency anaemia [Recovering/Resolving]
  - Disease progression [Recovering/Resolving]
